FAERS Safety Report 5596665-1 (Version None)
Quarter: 2008Q1

REPORT INFORMATION
  Report Type: 
  Country: None (occurrence: None)
  Receive Date: 20080118
  Receipt Date: 20080109
  Transmission Date: 20080703
  Serious: Yes (Other)
  Sender: FDA-Public Use
  Company Number: GB-PFIZER INC-2007108100

PATIENT
  Sex: Male

DRUGS (3)
  1. CHANTIX [Suspect]
     Indication: SMOKING CESSATION THERAPY
     Route: 048
     Dates: start: 20071105, end: 20071217
  2. BECLOMETHASONE DIPROPIONATE [Concomitant]
  3. SALMETEROL [Concomitant]
     Route: 055

REACTIONS (2)
  - DEPRESSION [None]
  - PARANOIA [None]
